FAERS Safety Report 9455929 (Version 1)
Quarter: 2013Q3

REPORT INFORMATION
  Report Type: Spontaneous
  Country: US (occurrence: US)
  Receive Date: 20130813
  Receipt Date: 20130813
  Transmission Date: 20140515
  Serious: No
  Sender: FDA-Public Use
  Company Number: US-B.I. PHARMACEUTICALS,INC./RIDGEFIELD-2013-BI-24099BP

PATIENT
  Age: 71 Year
  Sex: Female
  Weight: 61 kg

DRUGS (7)
  1. COMBIVENT [Suspect]
     Indication: EMPHYSEMA
     Dosage: STRENGTH: 20 MCG / 100 MCG; DAILY DOSE: 80 MCG/400 MCG
     Route: 055
     Dates: start: 20130701
  2. COMBIVENT [Suspect]
     Indication: EMPHYSEMA
     Dosage: STRENGTH: 18 MCG / 103 MCG; DAILY DOSE: 144 MCG/824 MCG
     Route: 055
     Dates: start: 2003
  3. SPIRIVA [Suspect]
     Indication: EMPHYSEMA
     Dosage: 18 MCG
     Route: 055
     Dates: start: 2008
  4. DILTIAZEM [Concomitant]
     Indication: HYPERTENSION
     Dosage: 120 MG
     Route: 048
     Dates: start: 2009
  5. LORAZEPAM [Concomitant]
     Indication: ANXIETY
     Dosage: 1 MG
     Route: 048
     Dates: start: 2006
  6. IRBESARTAN-HCTZ [Concomitant]
     Indication: HEART RATE INCREASED
     Dosage: STRENGTH: 150 MG-12.5 MG; DAILY DOSE: 150 MG-12.5 MG
     Route: 048
     Dates: start: 2011
  7. IRBESARTAN-HCTZ [Concomitant]
     Indication: HYPERTENSION

REACTIONS (3)
  - Dyspnoea [Not Recovered/Not Resolved]
  - Pulmonary congestion [Not Recovered/Not Resolved]
  - Nausea [Not Recovered/Not Resolved]
